FAERS Safety Report 7743021-3 (Version None)
Quarter: 2011Q3

REPORT INFORMATION
  Report Type: 
  Country: None (occurrence: None)
  Receive Date: 20110906
  Receipt Date: 20110830
  Transmission Date: 20111222
  Serious: Yes (Life-Threatening, Hospitalization, Other)
  Sender: FDA-Public Use
  Company Number: 2011SP039091

PATIENT
  Age: 54 Year
  Sex: Male

DRUGS (1)
  1. NOXAFIL [Suspect]
     Indication: PROPHYLAXIS

REACTIONS (4)
  - BRAIN INJURY [None]
  - EPILEPSY [None]
  - LOSS OF CONSCIOUSNESS [None]
  - CARDIAC ARREST [None]
